FAERS Safety Report 26078549 (Version 1)
Quarter: 2025Q4

REPORT INFORMATION
  Report Type: Report from Study
  Country: US (occurrence: US)
  Receive Date: 20251123
  Receipt Date: 20251123
  Transmission Date: 20260118
  Serious: Yes (Other)
  Sender: ALEXION PHARMACEUTICALS
  Company Number: US-AstraZeneca-CH-00996363A

PATIENT
  Sex: Male

DRUGS (1)
  1. DAPAGLIFLOZIN [Suspect]
     Active Substance: DAPAGLIFLOZIN
     Route: 065

REACTIONS (5)
  - Visual impairment [Unknown]
  - Optic nerve injury [Unknown]
  - Intervertebral disc protrusion [Unknown]
  - Feeling abnormal [Unknown]
  - Tremor [Unknown]
